FAERS Safety Report 21566532 (Version 2)
Quarter: 2022Q4

REPORT INFORMATION
  Report Type: Spontaneous
  Country: FR (occurrence: None)
  Receive Date: 20221108
  Receipt Date: 20221122
  Transmission Date: 20230113
  Serious: Yes (Other)
  Sender: FDA-Public Use
  Company Number: 2022A359996

PATIENT
  Age: 89 Year
  Sex: Female
  Weight: 67 kg

DRUGS (11)
  1. DAPAGLIFLOZIN [Suspect]
     Active Substance: DAPAGLIFLOZIN
     Indication: Insulin-requiring type 2 diabetes mellitus
     Route: 048
     Dates: start: 202109
  2. LEVOTHYROXINE [Concomitant]
     Active Substance: LEVOTHYROXINE
     Dosage: 112.5 MICROGRAMS PER INHALATION
     Route: 048
  3. CARBOMER [Concomitant]
     Active Substance: CARBOMER
     Dosage: 3 DROPS DAILY
     Route: 047
  4. MIRTAZAPINE [Concomitant]
     Active Substance: MIRTAZAPINE
     Route: 048
  5. BISOPROLOL [Concomitant]
     Active Substance: BISOPROLOL
     Route: 048
  6. XARELTO [Concomitant]
     Active Substance: RIVAROXABAN
     Route: 048
  7. LATANOPROST [Concomitant]
     Active Substance: LATANOPROST
     Dosage: 1 DROP DAILY
     Route: 047
  8. ATORVASTATIN [Concomitant]
     Active Substance: ATORVASTATIN
     Route: 048
  9. COLOPEG [Concomitant]
     Active Substance: POLYETHYLENE GLYCOL 3350\POTASSIUM CHLORIDE\SODIUM BICARBONATE\SODIUM CHLORIDE\SODIUM SULFATE
     Route: 048
     Dates: end: 20220922
  10. TOUJEO [Concomitant]
     Active Substance: INSULIN GLARGINE
     Dosage: 8 INTERNATIONAL UNITS DAILY
     Route: 058
  11. OMEPRAZOLE [Concomitant]
     Active Substance: OMEPRAZOLE
     Dosage: DAILY
     Route: 048

REACTIONS (3)
  - Escherichia bacteraemia [Recovered/Resolved]
  - Pyelonephritis [Recovered/Resolved]
  - Vulvovaginitis [Recovered/Resolved]

NARRATIVE: CASE EVENT DATE: 20220922
